FAERS Safety Report 10017149 (Version 1)
Quarter: 2014Q1

REPORT INFORMATION
  Report Type: Spontaneous
  Country: BR (occurrence: BR)
  Receive Date: 20140318
  Receipt Date: 20140318
  Transmission Date: 20141002
  Serious: Yes (Hospitalization)
  Sender: FDA-Public Use
  Company Number: BR-ROCHE-1361899

PATIENT
  Sex: Female

DRUGS (4)
  1. ACTEMRA [Suspect]
     Indication: PRODUCT USED FOR UNKNOWN INDICATION
     Route: 065
     Dates: start: 20131111
  2. ACTEMRA [Suspect]
     Route: 065
     Dates: start: 20131212
  3. ACTEMRA [Suspect]
     Route: 065
     Dates: start: 20140112
  4. SULPHASALAZINE [Concomitant]

REACTIONS (17)
  - Leukocytosis [Unknown]
  - Amylase increased [Unknown]
  - Hyponatraemia [Unknown]
  - Lipase increased [Unknown]
  - Hypokalaemia [Unknown]
  - Diarrhoea [Unknown]
  - Vomiting [Unknown]
  - Abdominal pain [Unknown]
  - Gastrointestinal disorder [Unknown]
  - Computerised tomogram abnormal [Unknown]
  - Lymphadenopathy [Unknown]
  - Colitis [Unknown]
  - Arthralgia [Unknown]
  - Joint swelling [Unknown]
  - Pain in extremity [Unknown]
  - Local swelling [Unknown]
  - Computerised tomogram abnormal [Unknown]
